FAERS Safety Report 14751825 (Version 1)
Quarter: 2018Q2

REPORT INFORMATION
  Report Type: Spontaneous
  Country: FR (occurrence: FR)
  Receive Date: 20180412
  Receipt Date: 20180412
  Transmission Date: 20180711
  Serious: Yes (Other)
  Sender: FDA-Public Use
  Company Number: FR-SA-2018SA076943

PATIENT
  Age: 49 Year
  Sex: Female

DRUGS (2)
  1. UVEDOSE [Concomitant]
     Active Substance: CHOLECALCIFEROL
     Route: 048
     Dates: start: 20160603
  2. AUBAGIO [Suspect]
     Active Substance: TERIFLUNOMIDE
     Indication: RELAPSING-REMITTING MULTIPLE SCLEROSIS
     Dosage: DOSE:1 UNIT(S)
     Route: 048
     Dates: start: 20160603, end: 20180216

REACTIONS (2)
  - Alanine aminotransferase increased [Unknown]
  - Hepatitis [Recovering/Resolving]
